FAERS Safety Report 4515218-7 (Version None)
Quarter: 2004Q4

REPORT INFORMATION
  Report Type: 
  Country: None (occurrence: None)
  Receive Date: 20041201
  Receipt Date: 20041122
  Transmission Date: 20050328
  Serious: Yes (Life-Threatening, Disabling)
  Sender: FDA-Public Use
  Company Number: GB-GLAXOSMITHKLINE-B0357799A

PATIENT
  Age: 66 Year
  Sex: Female
  Weight: 85 kg

DRUGS (10)
  1. ZYBAN [Suspect]
     Dosage: 150MG PER DAY
     Route: 048
     Dates: start: 20031125, end: 20040101
  2. AMOXICILLIN [Concomitant]
     Route: 065
  3. ERYTHROMYCIN [Concomitant]
     Route: 065
  4. IRON SULPHATE [Concomitant]
     Route: 065
  5. PREDNISOLONE [Concomitant]
     Route: 065
  6. CARBOPLATIN [Concomitant]
     Route: 042
     Dates: start: 20040601, end: 20040901
  7. ETOPOSIDE [Concomitant]
     Route: 042
     Dates: start: 20040601, end: 20040901
  8. IBUPROFEN [Concomitant]
     Route: 065
  9. PROCHLORPEMAZINE [Concomitant]
     Route: 065
  10. CHEMOTHERAPY [Concomitant]

REACTIONS (1)
  - AORTIC STENOSIS [None]
